FAERS Safety Report 8996243 (Version 1)
Quarter: 2013Q1

REPORT INFORMATION
  Report Type: Spontaneous
  Country: GB (occurrence: GB)
  Receive Date: 20130103
  Receipt Date: 20130103
  Transmission Date: 20140127
  Serious: Yes (Other)
  Sender: FDA-Public Use
  Company Number: PHHY2013GB000861

PATIENT
  Age: 14 Month
  Sex: Female

DRUGS (3)
  1. VALPROIC ACID [Suspect]
     Indication: EPILEPSY
  2. PHENOBARBITONE [Concomitant]
  3. CLOBAZAM [Concomitant]

REACTIONS (1)
  - Seizure cluster [Unknown]
